FAERS Safety Report 9892032 (Version 1)
Quarter: 2014Q1

REPORT INFORMATION
  Report Type: Spontaneous
  Country: US (occurrence: US)
  Receive Date: 20140212
  Receipt Date: 20140212
  Transmission Date: 20141002
  Serious: No
  Sender: FDA-Public Use
  Company Number: US-BAYER-2014-019128

PATIENT
  Age: 62 Year
  Sex: Female
  Weight: 67.12 kg

DRUGS (3)
  1. PHILLIPS STOOL SOFTENER BULK DOCUSATE [Suspect]
     Indication: CONSTIPATION
     Dosage: 3 DF, ONCE
     Route: 048
     Dates: start: 20140201, end: 20140201
  2. ALEVE CAPLET [Suspect]
     Dosage: 2 DF, PRN
     Route: 048
  3. SIMETHICONE [Concomitant]

REACTIONS (4)
  - Nausea [Recovered/Resolved]
  - Vomiting [Recovered/Resolved]
  - Abdominal pain upper [Not Recovered/Not Resolved]
  - Expired drug administered [None]
